FAERS Safety Report 13682848 (Version 1)
Quarter: 2017Q2

REPORT INFORMATION
  Report Type: Spontaneous
  Country: FR (occurrence: FR)
  Receive Date: 20170623
  Receipt Date: 20170623
  Transmission Date: 20170830
  Serious: Yes (Hospitalization)
  Sender: FDA-Public Use
  Company Number: FR-PFIZER INC-2017269542

PATIENT
  Age: 75 Year
  Sex: Male

DRUGS (19)
  1. LANTUS [Concomitant]
     Active Substance: INSULIN GLARGINE
  2. TAHOR [Concomitant]
     Active Substance: ATORVASTATIN CALCIUM
  3. VICTOZA [Concomitant]
     Active Substance: LIRAGLUTIDE
  4. DIAMICRON [Suspect]
     Active Substance: GLICLAZIDE
     Indication: TYPE 2 DIABETES MELLITUS
     Dosage: 60 MG, 1X/DAY
     Route: 048
     Dates: end: 20170517
  5. DUOPLAVIN [Concomitant]
     Active Substance: ASPIRIN\CLOPIDOGREL
  6. INEXIUM /01479302/ [Concomitant]
     Active Substance: ESOMEPRAZOLE MAGNESIUM
  7. SERESTA [Concomitant]
     Active Substance: OXAZEPAM
  8. ALTIM /00836301/ [Concomitant]
     Active Substance: CORTIVAZOL
  9. BACTRIM [Suspect]
     Active Substance: SULFAMETHOXAZOLE\TRIMETHOPRIM
     Indication: OSTEOMYELITIS
     Dosage: 1 DF, 2X/DAY
     Route: 048
     Dates: start: 20170418, end: 20170513
  10. BISOPROLOL FUMARATE. [Concomitant]
     Active Substance: BISOPROLOL FUMARATE
  11. RAMIPRIL. [Concomitant]
     Active Substance: RAMIPRIL
  12. METFORMINE [Suspect]
     Active Substance: METFORMIN HYDROCHLORIDE
     Indication: TYPE 2 DIABETES MELLITUS
     Dosage: 850 MG, 2X/DAY
     Route: 048
     Dates: end: 20170517
  13. DUPHALAC [Concomitant]
     Active Substance: LACTULOSE
  14. ALDACTONE [Suspect]
     Active Substance: SPIRONOLACTONE
     Dosage: 25 MG, 1X/DAY
     Route: 048
     Dates: end: 20170517
  15. ALLOPURINOL. [Suspect]
     Active Substance: ALLOPURINOL
     Indication: GOUT
     Dosage: 200 MG, 1X/DAY
     Route: 048
     Dates: end: 20170517
  16. LASILIX /00032601/ [Concomitant]
     Active Substance: FUROSEMIDE
  17. DAFALGAN [Concomitant]
     Active Substance: ACETAMINOPHEN
     Dosage: UNK UNK, AS NEEDED
     Dates: start: 2016
  18. CIFLOX /00697201/ [Suspect]
     Active Substance: CIPROFLOXACIN
     Indication: OSTEOMYELITIS
     Dosage: 500 MG, 2X/DAY
     Route: 048
     Dates: start: 20170418, end: 20170517
  19. DIFFU K [Concomitant]
     Active Substance: POTASSIUM CHLORIDE

REACTIONS (6)
  - Decreased appetite [Unknown]
  - Hepatitis acute [Recovering/Resolving]
  - Asthenia [Unknown]
  - Weight decreased [Unknown]
  - Pyrexia [Recovered/Resolved]
  - Hypotension [Unknown]

NARRATIVE: CASE EVENT DATE: 20170512
